FAERS Safety Report 9486832 (Version 2)
Quarter: 2013Q3

REPORT INFORMATION
  Report Type: Report from Study
  Country: US (occurrence: US)
  Receive Date: 20130829
  Receipt Date: 20130904
  Transmission Date: 20140515
  Serious: Yes (Other)
  Sender: FDA-Public Use
  Company Number: US-ALEXION PHARMACEUTICALS INC.-A201302038

PATIENT
  Age: 52 Year
  Sex: Male
  Weight: 73.9 kg

DRUGS (6)
  1. SOLIRIS [Suspect]
     Indication: HAEMOLYTIC URAEMIC SYNDROME
     Dosage: 900 MG, UNK
     Route: 042
  2. SOLIRIS [Suspect]
     Dosage: 1200 MG, Q2W
     Route: 042
  3. SODIUM BICARBONATE [Concomitant]
     Indication: DIALYSIS
     Dosage: UNK
  4. REMEGEL [Concomitant]
     Indication: RENAL FAILURE
     Dosage: 400 MG, UNK
     Dates: start: 20130827
  5. TOPROL [Concomitant]
     Indication: RENAL FAILURE
     Dosage: 25 MG, UNK
  6. PREDNISONE [Concomitant]
     Indication: PRODUCT USED FOR UNKNOWN INDICATION
     Dosage: 20 MG, UNK
     Dates: start: 20130827

REACTIONS (4)
  - Dyspnoea [Recovered/Resolved]
  - Rales [Recovered/Resolved]
  - Oxygen saturation decreased [Recovered/Resolved]
  - Oedema peripheral [Recovered/Resolved]
